FAERS Safety Report 7434022-3 (Version None)
Quarter: 2011Q2

REPORT INFORMATION
  Report Type: 
  Country: None (occurrence: None)
  Receive Date: 20110421
  Receipt Date: 20110421
  Transmission Date: 20111010
  Serious: Yes (Hospitalization)
  Sender: FDA-Public Use
  Company Number: None

PATIENT
  Sex: Male
  Weight: 76 kg

DRUGS (2)
  1. CARBOPLATIN [Suspect]
     Dosage: 1600 MG
     Dates: end: 20110404
  2. TAXOL [Suspect]
     Dosage: 760 MG
     Dates: end: 20110404

REACTIONS (1)
  - FEBRILE NEUTROPENIA [None]
